FAERS Safety Report 8514346-9 (Version None)
Quarter: 2012Q3

REPORT INFORMATION
  Report Type: 
  Country: None (occurrence: None)
  Receive Date: 20120717
  Receipt Date: 20120706
  Transmission Date: 20120928
  Serious: Yes (Other)
  Sender: FDA-Public Use
  Company Number: JP-VERTEX PHARMACEUTICALS INC.-AE-2012-005593

PATIENT
  Age: 54 Year
  Sex: Male

DRUGS (10)
  1. REBETOL [Concomitant]
     Route: 048
     Dates: start: 20120602
  2. REBETOL [Concomitant]
     Route: 048
     Dates: start: 20120512, end: 20120601
  3. CLOBETASOL PROPIONATE [Concomitant]
     Route: 061
     Dates: end: 20120307
  4. REBETOL [Concomitant]
     Indication: HEPATITIS C
     Route: 048
     Dates: start: 20120114, end: 20120209
  5. REBETOL [Concomitant]
     Route: 048
     Dates: start: 20120318, end: 20120406
  6. REBETOL [Concomitant]
     Route: 048
     Dates: end: 20120511
  7. TELAVIC (TELAPREVIR) [Suspect]
     Indication: HEPATITIS C
     Route: 048
     Dates: start: 20120114, end: 20120407
  8. REBETOL [Concomitant]
     Route: 048
     Dates: start: 20120210, end: 20120317
  9. REBETOL [Concomitant]
     Route: 048
     Dates: start: 20120407
  10. PEGINTERFERON ALFA-2B [Concomitant]
     Indication: HEPATITIS C
     Route: 058
     Dates: start: 20120114

REACTIONS (1)
  - RETINAL HAEMORRHAGE [None]
